FAERS Safety Report 19460598 (Version 1)
Quarter: 2021Q2

REPORT INFORMATION
  Report Type: Spontaneous
  Country: US (occurrence: US)
  Receive Date: 20210625
  Receipt Date: 20210625
  Transmission Date: 20210717
  Serious: Yes (Other)
  Sender: FDA-Public Use
  Company Number: US-CADILA HEALTHCARE LIMITED-US-ZYDUS-067128

PATIENT

DRUGS (8)
  1. CISPLATIN. [Suspect]
     Active Substance: CISPLATIN
     Indication: PLACENTAL CYST
     Dosage: 20 MG/M2  ON DAYS 1 AND 2,
     Route: 065
  2. DACTINOMYCIN [Suspect]
     Active Substance: DACTINOMYCIN
     Indication: PLACENTAL CYST
     Dosage: 0.5 MILLIGRAM ON DAY 8
     Route: 042
  3. PEMBROLIZUMAB. [Concomitant]
     Active Substance: PEMBROLIZUMAB
     Indication: PLACENTAL CYST
     Dosage: 200 MILLIGRAM EVERY THREE WEEKS
     Route: 065
  4. ETOPOSIDE. [Suspect]
     Active Substance: ETOPOSIDE
     Indication: PLACENTAL CYST
     Dosage: 100 MILLIGRAM/SQ. METER ON DAY 1 2
     Route: 065
  5. ETOPOSIDE. [Suspect]
     Active Substance: ETOPOSIDE
     Dosage: 100 MILLIGRAM/SQ. METER DAY 8
     Route: 042
  6. CISPLATIN. [Suspect]
     Active Substance: CISPLATIN
     Dosage: 75 MG/M2  ON DAY 1
     Route: 042
  7. METHOTREXATE. [Suspect]
     Active Substance: METHOTREXATE
     Indication: PLACENTAL CYST
     Dosage: 300 MG/M2  ON DAY 9
     Route: 042
  8. ETOPOSIDE. [Suspect]
     Active Substance: ETOPOSIDE
     Dosage: 150 MG/M2  ON DAY 1
     Route: 042

REACTIONS (3)
  - Tinnitus [Recovered/Resolved]
  - Ototoxicity [Recovered/Resolved]
  - Thrombocytopenia [Recovered/Resolved]
